FAERS Safety Report 9765339 (Version 1)
Quarter: 2013Q4

REPORT INFORMATION
  Report Type: Spontaneous
  Country: US (occurrence: US)
  Receive Date: 20131217
  Receipt Date: 20131217
  Transmission Date: 20140711
  Serious: No
  Sender: FDA-Public Use
  Company Number: US-GLAXOSMITHKLINE-A1005773A

PATIENT
  Age: 51 Year
  Sex: Male

DRUGS (6)
  1. VOTRIENT [Suspect]
     Indication: RENAL CANCER
     Dosage: 800MG PER DAY
     Route: 048
  2. IMODIUM AD [Concomitant]
  3. GAS-X [Concomitant]
  4. DILAUDID [Concomitant]
  5. MEDROL [Concomitant]
  6. ALLOPURINOL [Concomitant]
     Indication: RENAL CANCER

REACTIONS (9)
  - Oral pain [Unknown]
  - Diarrhoea [Unknown]
  - Flatulence [Unknown]
  - Gout [Unknown]
  - Pain [Unknown]
  - Cough [Unknown]
  - Increased upper airway secretion [Unknown]
  - Haemoptysis [Unknown]
  - Sunburn [Recovering/Resolving]
